FAERS Safety Report 8881258 (Version 1)
Quarter: 2012Q4

REPORT INFORMATION
  Report Type: 
  Country: US (occurrence: US)
  Receive Date: 20121031
  Receipt Date: 20121031
  Transmission Date: 20130627
  Serious: No
  Sender: FDA-Public Use
  Company Number: US-B.I. PHARMACEUTICALS,INC./RIDGEFIELD-2012-BP-26358BP

PATIENT
  Age: 78 None
  Sex: Female
  Weight: 117 kg

DRUGS (16)
  1. SPIRIVA [Suspect]
     Indication: CHRONIC OBSTRUCTIVE PULMONARY DISEASE
     Dosage: 18 mcg
     Route: 055
     Dates: start: 201101
  2. SYSTANE GEL [Concomitant]
     Indication: DRY EYE
     Dates: start: 20121023
  3. POTASSIUM [Concomitant]
     Dosage: 120 mEq
     Route: 048
  4. METOPROLOL [Concomitant]
     Indication: CARDIAC DISORDER
     Dosage: 25 mg
     Route: 048
  5. METOPROLOL [Concomitant]
     Indication: ANGINA PECTORIS
  6. NOVALOG PEN [Concomitant]
     Indication: DIABETES MELLITUS
     Dosage: 16 U
     Route: 058
  7. PREDNISONE [Concomitant]
     Indication: LUNG DISORDER
     Dosage: 5 mg
     Route: 048
     Dates: start: 2011
  8. PREDNISONE [Concomitant]
     Indication: DYSPNOEA
  9. LASIX [Concomitant]
     Indication: PERICARDIAL EFFUSION
     Dosage: 120 mg
     Route: 048
  10. LASIX [Concomitant]
     Indication: CARDIAC FAILURE CONGESTIVE
  11. ZOLOFT [Concomitant]
     Indication: NERVOUSNESS
     Dosage: 50 mg
     Route: 048
  12. SINGULAIR [Concomitant]
     Indication: BRONCHIAL DISORDER
     Route: 048
  13. IPRATROPIUM BROMIDE [Concomitant]
     Indication: DYSPNOEA
     Route: 055
  14. ALBUTEROL SULFATE [Concomitant]
     Indication: DYSPNOEA
     Route: 055
  15. SYSTANE ULTRA EYE DROPS [Concomitant]
     Indication: DRY EYE
  16. PLAVIX [Concomitant]
     Indication: TRANSIENT ISCHAEMIC ATTACK
     Dosage: 75 mg
     Route: 048

REACTIONS (4)
  - Blood glucose increased [Recovered/Resolved]
  - Blood glucose abnormal [Recovered/Resolved]
  - Glycosylated haemoglobin increased [Not Recovered/Not Resolved]
  - Stress [Not Recovered/Not Resolved]
